FAERS Safety Report 19265929 (Version 1)
Quarter: 2021Q2

REPORT INFORMATION
  Report Type: Report from Study
  Country: None (occurrence: CL)
  Receive Date: 20210518
  Receipt Date: 20210518
  Transmission Date: 20210717
  Serious: Yes (Other)
  Sender: FDA-Public Use
  Company Number: CL-ABBVIE-20K-034-3442379-00

PATIENT
  Age: 66 Year
  Sex: Female

DRUGS (4)
  1. SULFASALAZINE. [Concomitant]
     Active Substance: SULFASALAZINE
     Indication: PRODUCT USED FOR UNKNOWN INDICATION
  2. HUMIRA [Suspect]
     Active Substance: ADALIMUMAB
     Indication: ANKYLOSING SPONDYLITIS
     Route: 058
     Dates: start: 20190701
  3. HUMIRA [Suspect]
     Active Substance: ADALIMUMAB
     Indication: CROHN^S DISEASE
     Route: 058
  4. MESALAZINE [Concomitant]
     Active Substance: MESALAMINE
     Indication: PRODUCT USED FOR UNKNOWN INDICATION

REACTIONS (12)
  - Intraocular pressure test abnormal [Unknown]
  - Visual impairment [Unknown]
  - Uveitis [Not Recovered/Not Resolved]
  - Optic nerve disorder [Unknown]
  - Cataract [Not Recovered/Not Resolved]
  - Uveitic glaucoma [Not Recovered/Not Resolved]
  - Visual impairment [Unknown]
  - Crohn^s disease [Not Recovered/Not Resolved]
  - Ankylosing spondylitis [Not Recovered/Not Resolved]
  - Eye inflammation [Not Recovered/Not Resolved]
  - General symptom [Not Recovered/Not Resolved]
  - Mydriasis [Unknown]

NARRATIVE: CASE EVENT DATE: 202002
